FAERS Safety Report 12915650 (Version 1)
Quarter: 2016Q4

REPORT INFORMATION
  Report Type: Spontaneous
  Country: US (occurrence: US)
  Receive Date: 20161106
  Receipt Date: 20161106
  Transmission Date: 20170207
  Serious: No
  Sender: FDA-Public Use
  Company Number: US-RELYPSA-RLY2016003126

PATIENT
  Sex: Male

DRUGS (13)
  1. ATIVAN [Concomitant]
     Active Substance: LORAZEPAM
  2. CELEXA [Concomitant]
     Active Substance: CITALOPRAM HYDROBROMIDE
  3. B COMPLEX WITH FOLIC ACID [Concomitant]
  4. FERROUS FUMARATE [Concomitant]
     Active Substance: FERROUS FUMARATE
  5. CLONIDINE HCL [Concomitant]
     Active Substance: CLONIDINE HYDROCHLORIDE
  6. ASPIRIN                            /00002701/ [Concomitant]
     Active Substance: ASPIRIN
  7. VELTASSA [Suspect]
     Active Substance: PATIROMER
     Indication: HYPERKALAEMIA
     Dosage: 8.4 G, QD
     Route: 048
  8. TYLENOL [Concomitant]
     Active Substance: ACETAMINOPHEN
  9. CARVEDILOL. [Concomitant]
     Active Substance: CARVEDILOL
  10. ARANESP [Concomitant]
     Active Substance: DARBEPOETIN ALFA
  11. TAMSULOSIN HCL [Concomitant]
     Active Substance: TAMSULOSIN
  12. TRINATE [Concomitant]
     Active Substance: MINERALS\VITAMINS
  13. TORSEMIDE. [Concomitant]
     Active Substance: TORSEMIDE

REACTIONS (1)
  - Hospice care [Unknown]
